FAERS Safety Report 9704213 (Version 1)
Quarter: 2013Q4

REPORT INFORMATION
  Report Type: Spontaneous
  Country: US (occurrence: None)
  Receive Date: 20131121
  Receipt Date: 20131121
  Transmission Date: 20140711
  Serious: Yes (Hospitalization)
  Sender: FDA-Public Use
  Company Number: None

PATIENT
  Age: 22 Year
  Sex: Female
  Weight: 72.7 kg

DRUGS (14)
  1. TRAMADOL [Suspect]
     Dates: start: 20110917, end: 20110917
  2. HYDROCODONE/ACETAMINOPHEN [Suspect]
     Dates: start: 20110917
  3. ESCITALOPRAM [Concomitant]
  4. GABAPENTIN [Concomitant]
  5. AMIKACIN [Concomitant]
  6. CETIRIZINE [Concomitant]
  7. BECLOMETHASONE [Concomitant]
  8. DIPHENHYDRAMINE [Concomitant]
  9. IBUPROFEN [Concomitant]
  10. INSULIN [Concomitant]
  11. LANSORAZOLE [Concomitant]
  12. ONDESETRON [Concomitant]
  13. PANCREALIPASE [Concomitant]
  14. PIPERACILLIN/TAZOBACTAM [Concomitant]

REACTIONS (2)
  - Unresponsive to stimuli [None]
  - Extra dose administered [None]
